FAERS Safety Report 5196230-4 (Version None)
Quarter: 2007Q1

REPORT INFORMATION
  Report Type: 
  Country: None (occurrence: None)
  Receive Date: 20070102
  Receipt Date: 20061228
  Transmission Date: 20070707
  Serious: Yes (Life-Threatening)
  Sender: FDA-Public Use
  Company Number: DZ-BOEHRINGER INGELHEIM PHARMACEUTICALS, INC.-2006-FF-01457FF

PATIENT
  Sex: Male
  Weight: 85 kg

DRUGS (1)
  1. JOSIR [Suspect]
     Route: 048
     Dates: start: 20060927

REACTIONS (4)
  - HYPERHIDROSIS [None]
  - PAIN [None]
  - RESPIRATORY DISTRESS [None]
  - VERTIGO [None]
